FAERS Safety Report 8140431 (Version 4)
Quarter: 2014Q1

REPORT INFORMATION
  Report Type: Report from Study
  Country: US (occurrence: US)
  Receive Date: 20110916
  Receipt Date: 20140325
  Transmission Date: 20141002
  Serious: Yes (Death, Hospitalization)
  Sender: FDA-Public Use
  Company Number: US-ALEXION PHARMACEUTICALS INC.-A201101398

PATIENT
  Sex: Male

DRUGS (1)
  1. SOLIRIS [Suspect]
     Indication: PAROXYSMAL NOCTURNAL HAEMOGLOBINURIA
     Route: 042

REACTIONS (8)
  - Chronic obstructive pulmonary disease [Fatal]
  - Paroxysmal nocturnal haemoglobinuria [Not Recovered/Not Resolved]
  - Condition aggravated [Not Recovered/Not Resolved]
  - Cardiovascular disorder [Unknown]
  - White blood cell count abnormal [Unknown]
  - Thrombocytopenia [Unknown]
  - Pneumonia [Unknown]
  - Pyrexia [Unknown]
